FAERS Safety Report 7013446-2 (Version None)
Quarter: 2010Q3

REPORT INFORMATION
  Report Type: 
  Country: None (occurrence: None)
  Receive Date: 20100924
  Receipt Date: 20100914
  Transmission Date: 20110219
  Serious: Yes (Other)
  Sender: FDA-Public Use
  Company Number: US-PFIZER INC-2010120967

PATIENT
  Sex: Female

DRUGS (9)
  1. AMLODIPINE BESYLATE [Suspect]
     Indication: HYPERTENSION
     Dosage: 5 MG, 1X/DAY
     Dates: start: 20100901
  2. AZOR [Suspect]
     Indication: HYPERTENSION
     Dosage: 5/40 MG EVERY NIGHT
     Route: 048
     Dates: start: 20100101, end: 20100101
  3. AZOR [Suspect]
     Dosage: 2.5/20 MG
     Route: 048
     Dates: start: 20100101, end: 20100101
  4. AZOR [Suspect]
     Dosage: 5/40 MG
     Route: 048
     Dates: start: 20100101, end: 20100901
  5. AZOR [Suspect]
     Dosage: 5/40 MG
     Route: 048
     Dates: start: 20100901
  6. BENICAR [Suspect]
     Indication: HYPERTENSION
     Dosage: 20 MG, 1X/DAY
     Route: 048
     Dates: start: 20100901, end: 20100901
  7. ESTROGENS CONJUGATED/PROGESTERONE [Concomitant]
     Dosage: UNK
  8. CO-Q-10 [Concomitant]
     Dosage: UNK
  9. LOVAZA [Concomitant]
     Dosage: UNK

REACTIONS (4)
  - DIZZINESS [None]
  - DRUG INEFFECTIVE [None]
  - FLATULENCE [None]
  - PRURITUS [None]
